FAERS Safety Report 9060985 (Version 2)
Quarter: 2013Q1

REPORT INFORMATION
  Report Type: Report from Study
  Country: KR (occurrence: KR)
  Receive Date: 20130213
  Receipt Date: 20130301
  Transmission Date: 20140127
  Serious: Yes (Hospitalization)
  Sender: FDA-Public Use
  Company Number: KR-009507513-1302KOR004458

PATIENT
  Age: 70 Year
  Sex: Female
  Weight: 50 kg

DRUGS (7)
  1. DEXAMETHASONE [Suspect]
     Indication: PLASMA CELL MYELOMA
     Dosage: 20 MG ORALLY ON DAYS ONE,TWO, FOUR, FIVE, EIGHT, NINE, 11 AND 12 EVERY 21 DAYS
     Route: 048
     Dates: start: 20121120, end: 20130126
  2. DEXAMETHASONE [Suspect]
     Dosage: ORALLY ON DAYS ONE,TWO, FOUR, FIVE, EIGHT, NINE, 11 AND 12 EVERY 21 DAYS
     Route: 048
     Dates: start: 20130212
  3. BORTEZOMIB [Suspect]
     Dosage: 1.3 MG/M2 ON DAYS ONE, FOUR, EIGHT AND 11 EVERY 21 DAYS
     Route: 058
     Dates: start: 20121120, end: 20130125
  4. BORTEZOMIB [Suspect]
     Dosage: DAYS ONE, FOUR, EIGHT AND 11 EVERY 21 DAYS
     Route: 058
     Dates: start: 20130212
  5. ATORVASTATIN CALCIUM [Concomitant]
     Indication: HYPERCHOLESTEROLAEMIA
     Dosage: UNK
     Dates: start: 2004, end: 20130129
  6. HYZAAR [Concomitant]
     Indication: HYPERTENSION
     Dosage: UNK
     Route: 048
     Dates: start: 20120515, end: 20130129
  7. BEECOM C [Concomitant]
     Indication: PROPHYLAXIS
     Dosage: UNK
     Dates: start: 20060904, end: 20130129

REACTIONS (1)
  - Dehydration [Recovered/Resolved]
